FAERS Safety Report 6555226-8 (Version None)
Quarter: 2010Q1

REPORT INFORMATION
  Report Type: 
  Country: None (occurrence: None)
  Receive Date: 20100126
  Receipt Date: 20100111
  Transmission Date: 20100710
  Serious: Yes (Death)
  Sender: FDA-Public Use
  Company Number: IDA-00323

PATIENT
  Age: 50 Year
  Sex: Male

DRUGS (13)
  1. DIPRIVAN [Suspect]
     Indication: GENERAL ANAESTHESIA
     Dosage: 150 MG ONCE
     Route: 042
     Dates: start: 20090915
  2. PROPRANOLOL [Suspect]
     Dosage: 400 MG BID
     Route: 048
  3. FLECAINIDE ACETATE [Suspect]
     Dosage: 100 MG BID
  4. IRBESARTAN [Suspect]
     Dosage: 150 MG DAILY
     Route: 048
     Dates: end: 20090914
  5. EUPRESSYL (URAPIDIL) [Suspect]
     Dosage: 60 MG BID
     Route: 048
  6. ALLOPURINOL [Suspect]
     Indication: GOUT
     Dosage: 100 MG DAILY
     Route: 048
     Dates: end: 20090915
  7. CEFAZOLIN SODIUM+CEFAZOLINE BENZATHINE (CEFAZOLIN SODIUM, CEFAZOLINE B [Suspect]
     Indication: ANTIBIOTIC PROPHYLAXIS
     Dosage: 2 G
     Route: 042
     Dates: start: 20090915
  8. (SUFENTANIL) [Suspect]
     Indication: GENERAL ANAESTHESIA
     Dosage: 10 UG ONCE
     Route: 042
     Dates: start: 20090915
  9. TRACRIUM [Suspect]
     Indication: GENERAL ANAESTHESIA
     Dosage: 40 MG ONCE
     Route: 042
     Dates: start: 20090915
  10. DESFLURANE [Suspect]
     Indication: GENERAL ANAESTHESIA
     Dosage: 40 MG ONCE
     Route: 042
     Dates: start: 20090915
  11. ATORVASTATIN CALCIUM [Suspect]
     Indication: DYSLIPIDAEMIA
     Dosage: 10 MG DAILY
     Route: 048
     Dates: end: 20090915
  12. MIMPARA (CINACALCET) [Suspect]
     Dosage: 30 MG DAILY
     Route: 048
     Dates: end: 20090915
  13. PANTOPRAZOLE [Suspect]
     Dosage: 20 MG DAILY
     Route: 048
     Dates: end: 20090915

REACTIONS (6)
  - CARDIOVASCULAR INSUFFICIENCY [None]
  - DRUG INEFFECTIVE [None]
  - ELECTROCARDIOGRAM QRS COMPLEX PROLONGED [None]
  - HEART RATE DECREASED [None]
  - HYPOTENSION [None]
  - VENTRICULAR ARRHYTHMIA [None]
